FAERS Safety Report 4516044-5 (Version None)
Quarter: 2004Q4

REPORT INFORMATION
  Report Type: 
  Country: None (occurrence: None)
  Receive Date: 20041129
  Receipt Date: 20041118
  Transmission Date: 20050328
  Serious: Yes (Hospitalization)
  Sender: FDA-Public Use
  Company Number: 2004096843

PATIENT
  Age: 46 Year
  Sex: Female

DRUGS (1)
  1. OESTRING (RING) (ESTRADIOL) [Suspect]
     Indication: CONTRACEPTION
     Dosage: TOPICAL
     Route: 061

REACTIONS (2)
  - RASH [None]
  - SYNCOPE [None]
